FAERS Safety Report 7928016-9 (Version None)
Quarter: 2011Q4

REPORT INFORMATION
  Report Type: 
  Country: None (occurrence: None)
  Receive Date: 20111117
  Receipt Date: 20111117
  Transmission Date: 20120403
  Serious: No
  Sender: FDA-Public Use
  Company Number: None

PATIENT
  Sex: Female
  Weight: 107.5025 kg

DRUGS (1)
  1. RISPERIDONE [Suspect]
     Indication: DEPRESSION
     Dosage: RISPERIDONE 2 MG 1 TABLET TWICE DAILY
     Dates: end: 20111030

REACTIONS (7)
  - THIRST [None]
  - DYSKINESIA [None]
  - DIZZINESS [None]
  - GAIT DISTURBANCE [None]
  - HEART RATE IRREGULAR [None]
  - DYSSTASIA [None]
  - ASTHENIA [None]
